FAERS Safety Report 22390756 (Version 2)
Quarter: 2023Q2

REPORT INFORMATION
  Report Type: Spontaneous
  Country: US (occurrence: US)
  Receive Date: 20230531
  Receipt Date: 20230613
  Transmission Date: 20230721
  Serious: No
  Sender: FDA-Public Use
  Company Number: US-KARYOPHARM-2023KPT001241

PATIENT

DRUGS (17)
  1. XPOVIO [Suspect]
     Active Substance: SELINEXOR
     Indication: Brain cancer metastatic
     Dosage: 80 MG, WEEKLY
     Route: 048
     Dates: start: 20230428
  2. PROMETHAZINE [Concomitant]
     Active Substance: PROMETHAZINE HYDROCHLORIDE
  3. SERTRALINE [Concomitant]
     Active Substance: SERTRALINE HYDROCHLORIDE
  4. SIROLIMUS [Concomitant]
     Active Substance: SIROLIMUS
  5. TACROLIMUS [Concomitant]
     Active Substance: TACROLIMUS
  6. ABILIFY [Concomitant]
     Active Substance: ARIPIPRAZOLE
  7. CLOBETASOL [Concomitant]
     Active Substance: CLOBETASOL
  8. DEXAMETHASONE [Concomitant]
     Active Substance: DEXAMETHASONE
  9. ENALAPRIL [Concomitant]
     Active Substance: ENALAPRIL
  10. GRANISETRON [Concomitant]
     Active Substance: GRANISETRON
  11. LANSOPRAZOLE [Concomitant]
     Active Substance: LANSOPRAZOLE
  12. METHYLPHENIDATE [Concomitant]
     Active Substance: METHYLPHENIDATE
  13. OXYCODONE [Concomitant]
     Active Substance: OXYCODONE
  14. AMOXICILLIN [Concomitant]
     Active Substance: AMOXICILLIN
  15. AMLODIPINE BESYLATE [Concomitant]
     Active Substance: AMLODIPINE BESYLATE
  16. AMANTADINE [Concomitant]
     Active Substance: AMANTADINE
  17. PROCHLORPERAZINE [Concomitant]
     Active Substance: PROCHLORPERAZINE

REACTIONS (4)
  - Nausea [Not Recovered/Not Resolved]
  - Fatigue [Unknown]
  - Vomiting [Not Recovered/Not Resolved]
  - Off label use [Unknown]

NARRATIVE: CASE EVENT DATE: 20230101
